FAERS Safety Report 26094494 (Version 1)
Quarter: 2025Q4

REPORT INFORMATION
  Report Type: Spontaneous
  Country: CA (occurrence: CA)
  Receive Date: 20251126
  Receipt Date: 20251126
  Transmission Date: 20260117
  Serious: Yes (Hospitalization, Disabling, Other)
  Sender: HLS THERAPEUTICS
  Company Number: CA-HLS-202503067

PATIENT
  Age: 33 Year
  Sex: Male
  Weight: 85 kg

DRUGS (6)
  1. ABILIFY MAINTENA [Suspect]
     Active Substance: ARIPIPRAZOLE
     Indication: Bipolar disorder
     Dosage: 1 EVERY 1 MONTHS?AMOUNT: 400 MILLIGRAM?KIT DOSAGE FORM?THERAPY DURATION: 274 DAYS
     Route: 030
  2. CLOZARIL [Suspect]
     Active Substance: CLOZAPINE
     Indication: Bipolar disorder
     Dosage: 1 EVERY 1 DAYS?TABLETS DOSAGE FORM
     Route: 048
  3. EFFEXOR XR [Suspect]
     Active Substance: VENLAFAXINE HYDROCHLORIDE
     Indication: Schizophrenia
     Dosage: 1 EVERY 1 DAYS?CAPSULE, EXTENDED RELEASE DOSAGE FORM
     Route: 048
  4. CITRULLINE [Concomitant]
     Active Substance: CITRULLINE
     Route: 065
  5. TAMSULOSIN [Concomitant]
     Active Substance: TAMSULOSIN
     Dosage: CAPSULES DOSAGE FORM
     Route: 065
  6. Tangkat Ali [Concomitant]
     Route: 065

REACTIONS (5)
  - Erectile dysfunction [None]
  - Loss of personal independence in daily activities [None]
  - Prostatomegaly [None]
  - Quality of life decreased [None]
  - Testicular atrophy [None]
